FAERS Safety Report 24369926 (Version 1)
Quarter: 2024Q3

REPORT INFORMATION
  Report Type: Spontaneous
  Country: SE (occurrence: SE)
  Receive Date: 20240927
  Receipt Date: 20240927
  Transmission Date: 20241017
  Serious: Yes (Hospitalization)
  Sender: TEVA
  Company Number: None

PATIENT
  Age: 20 Year
  Sex: Female
  Weight: 57 kg

DRUGS (1)
  1. ISOTRETINOIN [Suspect]
     Active Substance: ISOTRETINOIN
     Indication: Acne
     Dosage: 2 DAILY, ISOTRETINOIN ACTAVIS
     Route: 048
     Dates: start: 20240403

REACTIONS (2)
  - Abdominal pain [Not Recovered/Not Resolved]
  - Genital cyst [Not Recovered/Not Resolved]

NARRATIVE: CASE EVENT DATE: 20240101
